FAERS Safety Report 9127056 (Version 2)
Quarter: 2013Q1

REPORT INFORMATION
  Report Type: Spontaneous
  Country: IT (occurrence: IT)
  Receive Date: 20130228
  Receipt Date: 20130305
  Transmission Date: 20140127
  Serious: Yes (Hospitalization)
  Sender: FDA-Public Use
  Company Number: PHHY2013IT017845

PATIENT
  Age: 60 Year
  Sex: Female

DRUGS (3)
  1. TEGRETOL [Suspect]
     Indication: TRIGEMINAL NEURALGIA
     Dosage: 1 DF, DAILY
     Route: 048
     Dates: start: 20110601
  2. VALSARTAN + HCT [Suspect]
     Indication: HYPERTENSION
     Dosage: 345 MG, DAILY
     Route: 048
     Dates: start: 20110105, end: 20130105
  3. ATENOLOL, CHLORTHALIDONE [Suspect]
     Indication: HYPERTENSION
     Dosage: 1 DF, DAILY
     Route: 048
     Dates: start: 20110105, end: 20130105

REACTIONS (3)
  - Hypokalaemia [Recovered/Resolved]
  - Hyponatraemia [Recovered/Resolved]
  - Vertigo [Recovered/Resolved]
